FAERS Safety Report 18725345 (Version 1)
Quarter: 2021Q1

REPORT INFORMATION
  Report Type: Spontaneous
  Country: FR (occurrence: FR)
  Receive Date: 20210111
  Receipt Date: 20210111
  Transmission Date: 20210419
  Serious: Yes (Hospitalization)
  Sender: FDA-Public Use
  Company Number: FR-TEVA-2021-FR-1866661

PATIENT
  Age: 47 Year
  Sex: Female

DRUGS (5)
  1. TIXOCORTOL (PIVALATE DE) [Suspect]
     Active Substance: TIXOCORTOL PIVALATE
     Indication: SINUSITIS
     Route: 065
     Dates: start: 20201007
  2. DESONIDE. [Suspect]
     Active Substance: DESONIDE
     Indication: SYMPTOMATIC TREATMENT
     Route: 061
     Dates: start: 202010, end: 202010
  3. ACETYLCYSTEINE. [Suspect]
     Active Substance: ACETYLCYSTEINE
     Indication: SINUSITIS
     Route: 048
     Dates: start: 20201007
  4. AUGMENTIN [Suspect]
     Active Substance: AMOXICILLIN\CLAVULANATE POTASSIUM
     Indication: SINUSITIS
     Route: 048
     Dates: start: 20201007
  5. PREDNISOLONE. [Suspect]
     Active Substance: PREDNISOLONE
     Indication: SINUSITIS
     Route: 048
     Dates: start: 20201007

REACTIONS (1)
  - Toxic skin eruption [Recovered/Resolved]

NARRATIVE: CASE EVENT DATE: 20201010
